FAERS Safety Report 16997461 (Version 1)
Quarter: 2019Q4

REPORT INFORMATION
  Report Type: Other
  Country: DE (occurrence: DE)
  Receive Date: 20191106
  Receipt Date: 20191106
  Transmission Date: 20200122
  Serious: No
  Sender: FDA-Public Use
  Company Number: DE-LUPIN PHARMACEUTICALS INC.-2019-04751

PATIENT
  Sex: Female

DRUGS (1)
  1. TOPIRAMATE. [Suspect]
     Active Substance: TOPIRAMATE
     Indication: BORDERLINE PERSONALITY DISORDER
     Dosage: UNK
     Route: 065
     Dates: start: 2019

REACTIONS (5)
  - Speech disorder [Unknown]
  - Listless [Unknown]
  - Weight decreased [Unknown]
  - Food aversion [Unknown]
  - Decreased appetite [Unknown]

NARRATIVE: CASE EVENT DATE: 2019
